FAERS Safety Report 19802796 (Version 1)
Quarter: 2021Q3

REPORT INFORMATION
  Report Type: Spontaneous
  Country: US (occurrence: US)
  Receive Date: 20210903
  Receipt Date: 20210903
  Transmission Date: 20211014
  Serious: Yes (Hospitalization)
  Sender: FDA-Public Use
  Company Number: None

PATIENT
  Age: 63 Year
  Sex: Female

DRUGS (4)
  1. FENTANYL. [Concomitant]
     Active Substance: FENTANYL
  2. KISQALI [Suspect]
     Active Substance: RIBOCICLIB
     Indication: BREAST CANCER
     Dosage: FOR 3 WEEKS THEN OF  1 WEEK
     Route: 048
  3. LETROZOLE. [Concomitant]
     Active Substance: LETROZOLE
  4. SULCRAFATE [Concomitant]

REACTIONS (1)
  - Incoherent [None]

NARRATIVE: CASE EVENT DATE: 20210830
